FAERS Safety Report 8959088 (Version 1)
Quarter: 2012Q4

REPORT INFORMATION
  Report Type: 
  Country: CL (occurrence: CL)
  Receive Date: 20121212
  Receipt Date: 20121212
  Transmission Date: 20130627
  Serious: Yes (Other)
  Sender: FDA-Public Use
  Company Number: CL-BAYER-2012-128377

PATIENT
  Age: 24 Year
  Sex: Female

DRUGS (1)
  1. YAZ [Suspect]
     Dosage: UNK
     Route: 048
     Dates: start: 201208

REACTIONS (5)
  - Salmonellosis [None]
  - Diarrhoea [None]
  - Vomiting [None]
  - Vaginal haemorrhage [Recovered/Resolved]
  - Uterine pain [None]
